FAERS Safety Report 4467837-4 (Version None)
Quarter: 2004Q4

REPORT INFORMATION
  Report Type: 
  Country: None (occurrence: None)
  Receive Date: 20041004
  Receipt Date: 20041004
  Transmission Date: 20050328
  Serious: No
  Sender: FDA-Public Use
  Company Number: None

PATIENT
  Age: 29 Year
  Sex: Male
  Weight: 62.1428 kg

DRUGS (1)
  1. PAXIL CR  40MG  GLAXO SMITH KLINE [Suspect]
     Indication: ANXIETY DISORDER
     Dosage: 40 MG   ONCE A DAY   ORAL
     Route: 048
     Dates: start: 20040201, end: 20041002

REACTIONS (5)
  - DIZZINESS [None]
  - DRUG DEPENDENCE [None]
  - FEELING ABNORMAL [None]
  - PYREXIA [None]
  - STOMACH DISCOMFORT [None]
